FAERS Safety Report 9201899 (Version 1)
Quarter: 2013Q1

REPORT INFORMATION
  Report Type: Spontaneous
  Country: AU (occurrence: None)
  Receive Date: 20130327
  Receipt Date: 20130327
  Transmission Date: 20140127
  Serious: Yes (Hospitalization)
  Sender: FDA-Public Use
  Company Number: 146723

PATIENT
  Age: 16 Month
  Sex: Male

DRUGS (2)
  1. CYTARABINE [Suspect]
  2. ETOPOSIDE [Suspect]

REACTIONS (5)
  - Tumour lysis syndrome [None]
  - Respiratory failure [None]
  - Renal failure acute [None]
  - Respiratory syncytial virus infection [None]
  - Acidosis [None]
